FAERS Safety Report 6072753-0 (Version None)
Quarter: 2009Q1

REPORT INFORMATION
  Report Type: 
  Country: None (occurrence: None)
  Receive Date: 20090210
  Receipt Date: 20090203
  Transmission Date: 20090719
  Serious: Yes (Other)
  Sender: FDA-Public Use
  Company Number: PK-B.I. PHARMACEUTICALS,INC./RIDGEFIELD-2009-DE-01177GD

PATIENT
  Age: 50 Year
  Sex: Female

DRUGS (5)
  1. IPRATROPIUM BROMIDE [Suspect]
     Indication: ASTHMA
     Route: 055
  2. MAGNESIUM SULFATE [Suspect]
     Indication: ASTHMA
     Route: 042
  3. ALPHA2-ADRENERGIC AGONIST [Suspect]
     Indication: ASTHMA
     Route: 055
  4. CORTICOSTEROIDS [Suspect]
     Indication: ASTHMA
     Route: 042
  5. LEVOFLOXACIN [Suspect]
     Indication: ASTHMA

REACTIONS (1)
  - DRUG INEFFECTIVE [None]
